FAERS Safety Report 7388774-1 (Version None)
Quarter: 2011Q2

REPORT INFORMATION
  Report Type: 
  Country: None (occurrence: None)
  Receive Date: 20110401
  Receipt Date: 20110328
  Transmission Date: 20111010
  Serious: Yes (Hospitalization, Other)
  Sender: FDA-Public Use
  Company Number: US-SANOFI-AVENTIS-2010SA036249

PATIENT
  Age: 49 Year
  Sex: Female
  Weight: 64 kg

DRUGS (4)
  1. PLAVIX [Suspect]
     Indication: CAROTID ARTERY OCCLUSION
     Route: 065
     Dates: start: 20060101, end: 20100319
  2. INTERFERON BETA NOS [Suspect]
     Indication: MULTIPLE SCLEROSIS
     Route: 058
     Dates: start: 20050824
  3. ASPIRIN [Suspect]
     Indication: CAROTID ARTERY OCCLUSION
     Route: 065
     Dates: end: 20100301
  4. AGGRENOX [Suspect]
     Indication: CAROTID ARTERY OCCLUSION
     Route: 065
     Dates: end: 20100301

REACTIONS (5)
  - HYPOAESTHESIA [None]
  - SUBDURAL HAEMATOMA [None]
  - PARAESTHESIA [None]
  - HEAD INJURY [None]
  - OFF LABEL USE [None]
